FAERS Safety Report 7758894-8 (Version None)
Quarter: 2011Q3

REPORT INFORMATION
  Report Type: 
  Country: None (occurrence: None)
  Receive Date: 20110916
  Receipt Date: 20110916
  Transmission Date: 20111222
  Serious: No
  Sender: FDA-Public Use
  Company Number: None

PATIENT
  Sex: Female
  Weight: 68.0396 kg

DRUGS (7)
  1. DEXAMETHASONE [Concomitant]
  2. TEMODAR [Suspect]
     Dosage: 120MG PO QD 21 DAYS
     Route: 048
     Dates: start: 20110723
  3. AVASTIN [Concomitant]
  4. TEMODAR [Suspect]
  5. ONDANSETRON [Concomitant]
  6. KEPPRA [Concomitant]
  7. LOVENOX [Concomitant]

REACTIONS (2)
  - PULMONARY EMBOLISM [None]
  - FALL [None]
